FAERS Safety Report 8399439-1 (Version None)
Quarter: 2012Q1

REPORT INFORMATION
  Report Type: 
  Country: None (occurrence: None)
  Receive Date: 20120323
  Receipt Date: 20110715
  Transmission Date: 20120608
  Serious: Yes (Other)
  Sender: FDA-Public Use
  Company Number: 163-21880-11012416

PATIENT
  Age: 67 Year
  Sex: Male

DRUGS (3)
  1. REVLIMID [Suspect]
     Indication: MYELODYSPLASTIC SYNDROME
     Dosage: 10 MG, 1 IN 1 D, PO
     Route: 048
     Dates: start: 20100410
  2. REVLIMID [Suspect]
     Dosage: 5 MG, 1 IN 1 D, PO ; 2.5 MG, 1 IN 2 D, PO
     Route: 048
     Dates: start: 20100701
  3. REVLIMID [Suspect]
     Dosage: 5 MG, 1 IN 1 D, PO ; 2.5 MG, 1 IN 2 D, PO
     Route: 048
     Dates: start: 20110101

REACTIONS (4)
  - BLOOD URINE PRESENT [None]
  - CHROMATURIA [None]
  - THROMBOCYTOPENIA [None]
  - DYSURIA [None]
